FAERS Safety Report 10911813 (Version 1)
Quarter: 2015Q1

REPORT INFORMATION
  Report Type: Spontaneous
  Country: US (occurrence: None)
  Receive Date: 20150128
  Receipt Date: 20150128
  Transmission Date: 20150721
  Serious: No
  Sender: FDA-Public Use
  Company Number: 2014TUS011279

PATIENT
  Age: 59 Year
  Sex: Male
  Weight: 99.8 kg

DRUGS (4)
  1. ELAVIL /00002202/ (AMITRIPTYLINE HYDROCHLORIDE) [Concomitant]
  2. MORPHINE SULFATE. [Concomitant]
     Active Substance: MORPHINE SULFATE
  3. KLONOPIN [Concomitant]
     Active Substance: CLONAZEPAM
  4. BRINTELLIX [Suspect]
     Active Substance: VORTIOXETINE HYDROBROMIDE
     Indication: BIPOLAR I DISORDER
     Route: 048
     Dates: start: 201409, end: 2014

REACTIONS (2)
  - Wrong technique in drug usage process [None]
  - Drug ineffective for unapproved indication [None]
